FAERS Safety Report 24412125 (Version 1)
Quarter: 2024Q4

REPORT INFORMATION
  Report Type: Spontaneous
  Country: US (occurrence: US)
  Receive Date: 20241008
  Receipt Date: 20241008
  Transmission Date: 20250114
  Serious: No
  Sender: ROCHE
  Company Number: US-ROCHE-10000099845

PATIENT
  Sex: Male
  Weight: 74.84 kg

DRUGS (1)
  1. RITUXAN [Suspect]
     Active Substance: RITUXIMAB
     Indication: Splenic marginal zone lymphoma
     Route: 042
     Dates: start: 20231218

REACTIONS (7)
  - Chills [Recovered/Resolved]
  - Hypersensitivity [Recovered/Resolved]
  - Eye pruritus [Unknown]
  - Red blood cell count decreased [Unknown]
  - Sinus congestion [Unknown]
  - Urticaria [Recovered/Resolved]
  - Skin burning sensation [Unknown]
